FAERS Safety Report 26109758 (Version 2)
Quarter: 2025Q4

REPORT INFORMATION
  Report Type: Spontaneous
  Country: JP (occurrence: JP)
  Receive Date: 20251201
  Receipt Date: 20251206
  Transmission Date: 20260117
  Serious: Yes (Death, Hospitalization, Other)
  Sender: MERCK SHARP & DOHME LLC
  Company Number: JP-009507513-2355587

PATIENT
  Age: 70 Year
  Sex: Male

DRUGS (3)
  1. KEYTRUDA [Suspect]
     Active Substance: PEMBROLIZUMAB
     Indication: Bile duct cancer recurrent
     Route: 041
     Dates: start: 20251023, end: 20251023
  2. CISPLATIN [Suspect]
     Active Substance: CISPLATIN
     Indication: Bile duct cancer recurrent
     Dosage: 25MG/M2
     Route: 041
     Dates: start: 20251023, end: 20251023
  3. GEMCITABINE [Suspect]
     Active Substance: GEMCITABINE
     Indication: Bile duct cancer recurrent
     Dosage: 1000MG/M2
     Route: 041
     Dates: start: 20251023, end: 20251023

REACTIONS (7)
  - Death [Fatal]
  - Haemorrhagic ascites [Unknown]
  - Immune-mediated enterocolitis [Unknown]
  - Septic shock [Unknown]
  - Enteritis infectious [Unknown]
  - Disseminated intravascular coagulation [Unknown]
  - Febrile neutropenia [Unknown]

NARRATIVE: CASE EVENT DATE: 20151101
